FAERS Safety Report 9506522 (Version 1)
Quarter: 2013Q3

REPORT INFORMATION
  Report Type: Report from Study
  Country: BR (occurrence: BR)
  Receive Date: 20130906
  Receipt Date: 20130906
  Transmission Date: 20140515
  Serious: Yes (Other)
  Sender: FDA-Public Use
  Company Number: PHHY2013BR098275

PATIENT
  Age: 73 Year
  Sex: Male

DRUGS (1)
  1. TEGRETOL CR [Suspect]
     Indication: CONVULSION
     Dosage: UNK UKN, BID
     Dates: start: 201003

REACTIONS (1)
  - Prostate cancer [Not Recovered/Not Resolved]
